FAERS Safety Report 9213860 (Version 1)
Quarter: 2013Q2

REPORT INFORMATION
  Report Type: Spontaneous
  Country: US (occurrence: US)
  Receive Date: 20130405
  Receipt Date: 20130405
  Transmission Date: 20140414
  Serious: Yes (Other)
  Sender: FDA-Public Use
  Company Number: US-009507513-1304USA001842

PATIENT
  Sex: Male

DRUGS (3)
  1. FELBATOL [Suspect]
     Dosage: 3600 MG, DAILY
     Route: 048
     Dates: start: 2013, end: 2013
  2. FELBATOL [Suspect]
     Dosage: 1800 MG, DAILY
     Route: 048
     Dates: start: 2013, end: 20130319
  3. FELBATOL [Suspect]
     Dosage: 900 MG, DAILY
     Route: 048
     Dates: start: 20130320, end: 20130320

REACTIONS (3)
  - Injury [Unknown]
  - Drug withdrawal convulsions [Unknown]
  - Incorrect dose administered [Not Recovered/Not Resolved]
